FAERS Safety Report 18880315 (Version 1)
Quarter: 2021Q1

REPORT INFORMATION
  Report Type: Spontaneous
  Country: US (occurrence: US)
  Receive Date: 20210211
  Receipt Date: 20210211
  Transmission Date: 20210420
  Serious: Yes (Hospitalization)
  Sender: FDA-Public Use
  Company Number: US-STRIDES ARCOLAB LIMITED-2020SP016284

PATIENT
  Age: 15 Year
  Sex: Female
  Weight: 54.9 kg

DRUGS (2)
  1. PREDNISOLONE. [Suspect]
     Active Substance: PREDNISOLONE
     Indication: PERIARTHRITIS
     Dosage: UNK
     Route: 065
  2. GABAPENTIN. [Suspect]
     Active Substance: GABAPENTIN
     Indication: NEURALGIC AMYOTROPHY
     Dosage: 400 MILLIGRAM, TID
     Route: 048

REACTIONS (1)
  - Drug ineffective [Unknown]
